FAERS Safety Report 5979485-5 (Version None)
Quarter: 2008Q4

REPORT INFORMATION
  Report Type: 
  Country: None (occurrence: None)
  Receive Date: 20081204
  Receipt Date: 20081202
  Transmission Date: 20090506
  Serious: Yes (Other)
  Sender: FDA-Public Use
  Company Number: US-WYE-H06800108

PATIENT
  Sex: Male

DRUGS (1)
  1. XYNTHA [Suspect]
     Dosage: UNKNOWN

REACTIONS (2)
  - ABDOMINAL PAIN UPPER [None]
  - HYPERSENSITIVITY [None]
